FAERS Safety Report 25767880 (Version 2)
Quarter: 2025Q4

REPORT INFORMATION
  Report Type: Spontaneous
  Country: EU (occurrence: EU)
  Receive Date: 20250905
  Receipt Date: 20251002
  Transmission Date: 20260118
  Serious: Yes (Other)
  Sender: NOVARTIS
  Company Number: EU-002147023-NVSC2025FR135693

PATIENT
  Age: 60 Year
  Sex: Male

DRUGS (4)
  1. BEOVU [Suspect]
     Active Substance: BROLUCIZUMAB-DBLL
     Indication: Polypoidal choroidal vasculopathy
     Dosage: 0.05 ML
     Route: 031
     Dates: start: 20250401, end: 20250401
  2. BEOVU [Suspect]
     Active Substance: BROLUCIZUMAB-DBLL
     Dosage: UNK
     Route: 031
     Dates: start: 20250805, end: 20250805
  3. BEOVU [Suspect]
     Active Substance: BROLUCIZUMAB-DBLL
     Dosage: UNK
     Route: 031
     Dates: start: 20250429, end: 20250429
  4. BEOVU [Suspect]
     Active Substance: BROLUCIZUMAB-DBLL
     Dosage: UNK
     Route: 031
     Dates: start: 20250526, end: 20250526

REACTIONS (5)
  - Vision blurred [Recovering/Resolving]
  - Ocular hypertension [Recovered/Resolved with Sequelae]
  - Iridocyclitis [Recovering/Resolving]
  - Uveitis [Recovering/Resolving]
  - Vitritis [Recovering/Resolving]

NARRATIVE: CASE EVENT DATE: 20250805
